FAERS Safety Report 6711794-4 (Version None)
Quarter: 2010Q2

REPORT INFORMATION
  Report Type: 
  Country: None (occurrence: None)
  Receive Date: 20100505
  Receipt Date: 20100415
  Transmission Date: 20101027
  Serious: Yes (Death)
  Sender: FDA-Public Use
  Company Number: US-ROCHE-700719

PATIENT
  Sex: Female
  Weight: 54.9 kg

DRUGS (1)
  1. CAPECITABINE [Suspect]
     Indication: COLORECTAL CANCER
     Dosage: 3 TABLET IN AM AND 2 TABLETS
     Route: 048
     Dates: start: 20080716, end: 20100215

REACTIONS (1)
  - DEATH [None]
